FAERS Safety Report 6887252-3 (Version None)
Quarter: 2010Q3

REPORT INFORMATION
  Report Type: 
  Country: None (occurrence: None)
  Receive Date: 20100730
  Receipt Date: 20100603
  Transmission Date: 20110219
  Serious: No
  Sender: FDA-Public Use
  Company Number: A0862737A

PATIENT
  Age: 44 Year
  Sex: Male

DRUGS (3)
  1. FLOVENT [Suspect]
     Indication: ASTHMA
     Route: 055
     Dates: start: 20100401, end: 20100401
  2. PERCOCET [Concomitant]
  3. VALIUM [Concomitant]

REACTIONS (5)
  - DRUG INEFFECTIVE [None]
  - HEART RATE IRREGULAR [None]
  - HYPERHIDROSIS [None]
  - OROPHARYNGEAL BLISTERING [None]
  - RESTLESSNESS [None]
